FAERS Safety Report 6450126-6 (Version None)
Quarter: 2009Q4

REPORT INFORMATION
  Report Type: 
  Country: None (occurrence: None)
  Receive Date: 20091123
  Receipt Date: 20091116
  Transmission Date: 20100525
  Serious: Yes (Hospitalization)
  Sender: FDA-Public Use
  Company Number: US-ROXANE LABORATORIES, INC.-2009-RO-01171RO

PATIENT
  Age: 48 Year
  Sex: Male

DRUGS (6)
  1. CLARITHROMYCIN [Suspect]
     Indication: PNEUMONIA
     Dosage: 1000 MG
     Route: 048
  2. CLONIDINE [Suspect]
     Dosage: 0.2 MG
     Route: 048
  3. COLCHICINE [Suspect]
     Indication: GOUT
     Dosage: 0.6 MG
     Route: 048
  4. CEFTRIAXONE [Concomitant]
     Indication: PNEUMONIA
  5. DOXYCYCLINE [Concomitant]
     Indication: PNEUMONIA
  6. ANTIHYPERTENSIVE MEDICATION [Concomitant]
     Indication: HYPERTENSION
     Route: 048

REACTIONS (6)
  - LEFT VENTRICULAR HYPERTROPHY [None]
  - PNEUMONIA [None]
  - RESPIRATORY DISTRESS [None]
  - RHABDOMYOLYSIS [None]
  - SEPSIS [None]
  - TACHYCARDIA [None]
